FAERS Safety Report 7354784 (Version 2)
Quarter: 2020Q3

REPORT INFORMATION
  Report Type: Report from Study
  Country: RS (occurrence: None)
  Receive Date: 20100414
  Receipt Date: 20100505
  Transmission Date: 20201105
  Serious: Yes (Hospitalization)
  Sender: FDA-Public Use
  Company Number: RS-WYE-H14449910

PATIENT
  Age: 38 Year
  Sex: Female
  Weight: 63 kg

DRUGS (4)
  1. LAPATINIB [Suspect]
     Active Substance: LAPATINIB
     Indication: BREAST CANCER
     Route: 048
     Dates: start: 20091117, end: 20100322
  2. CAPECITABINE. [Suspect]
     Active Substance: CAPECITABINE
     Indication: BREAST CANCER
     Route: 048
     Dates: start: 20091117, end: 20100322
  3. CAPECITABINE. [Suspect]
     Active Substance: CAPECITABINE
     Dosage: 3200 MG ? FREQUENCY NOT PROVIDED
     Route: 048
     Dates: start: 20100406
  4. LAPATINIB [Suspect]
     Active Substance: LAPATINIB
     Dosage: 1000 MG ? FREQUENCY NOT PROVIDED
     Route: 048
     Dates: start: 20100406

REACTIONS (2)
  - Skin infection [Recovered/Resolved]
  - Nail disorder [Recovered/Resolved]

NARRATIVE: CASE EVENT DATE: 20100327
